FAERS Safety Report 20684686 (Version 1)
Quarter: 2022Q2

REPORT INFORMATION
  Report Type: Report from Study
  Country: US (occurrence: US)
  Receive Date: 20220407
  Receipt Date: 20220407
  Transmission Date: 20220720
  Serious: Yes (Hospitalization, Other)
  Sender: FDA-Public Use
  Company Number: US-TAKEDA-2022TUS021761

PATIENT
  Age: 52 Year
  Sex: Female
  Weight: 80 kg

DRUGS (43)
  1. HUMAN IMMUNOGLOBULIN G [Suspect]
     Active Substance: HUMAN IMMUNOGLOBULIN G
     Indication: Immunodeficiency common variable
     Dosage: 20 GRAM, 1X/2WKS
     Route: 058
     Dates: start: 20200714
  2. HUMAN IMMUNOGLOBULIN G [Suspect]
     Active Substance: HUMAN IMMUNOGLOBULIN G
     Dosage: 20 GRAM, 1X/2WKS
     Route: 058
     Dates: start: 20200716
  3. HUMAN IMMUNOGLOBULIN G [Suspect]
     Active Substance: HUMAN IMMUNOGLOBULIN G
     Dosage: 20 GRAM, Q2WEEKS
     Route: 058
     Dates: start: 20200716
  4. ONDANSETRON HCL [Concomitant]
     Active Substance: ONDANSETRON HYDROCHLORIDE
  5. OXYGEN [Concomitant]
     Active Substance: OXYGEN
  6. ACETAMINOPHEN [Concomitant]
     Active Substance: ACETAMINOPHEN
  7. DIPHENHYDRAMINE [Concomitant]
     Active Substance: DIPHENHYDRAMINE
  8. EPINEPHRINE [Concomitant]
     Active Substance: EPINEPHRINE
  9. LIDOCAINE [Concomitant]
     Active Substance: LIDOCAINE
  10. DEXAMETHASONE INTENSOL [Concomitant]
     Active Substance: DEXAMETHASONE
  11. LYRICA [Concomitant]
     Active Substance: PREGABALIN
  12. DOXYCYCLINE HYCLATE [Concomitant]
     Active Substance: DOXYCYCLINE HYCLATE
  13. TRESIBA [Concomitant]
     Active Substance: INSULIN DEGLUDEC
  14. NOVOLOG [Concomitant]
     Active Substance: INSULIN ASPART
  15. POTASSIUM CHLORIDE [Concomitant]
     Active Substance: POTASSIUM CHLORIDE
  16. FLECAINIDE ACETATE [Concomitant]
     Active Substance: FLECAINIDE ACETATE
  17. PREDNISONE [Concomitant]
     Active Substance: PREDNISONE
  18. FLUTICASONE PROPIONATE [Concomitant]
     Active Substance: FLUTICASONE PROPIONATE
  19. PANTOPRAZOLE [Concomitant]
     Active Substance: PANTOPRAZOLE
  20. METOCLOPRAMIDE HYDROCHLORIDE [Concomitant]
     Active Substance: METOCLOPRAMIDE HYDROCHLORIDE
  21. ATORVASTATIN CALCIUM [Concomitant]
     Active Substance: ATORVASTATIN CALCIUM
  22. MONTELUKAST SODIUM [Concomitant]
     Active Substance: MONTELUKAST SODIUM
  23. FENOFIBRATE [Concomitant]
     Active Substance: FENOFIBRATE
  24. DILTIAZEM [Concomitant]
     Active Substance: DILTIAZEM
  25. HYDRALAZINE HCL [Concomitant]
     Active Substance: HYDRALAZINE HYDROCHLORIDE
  26. OXYCODONE HYDROCHLORIDE [Concomitant]
     Active Substance: OXYCODONE HYDROCHLORIDE
  27. ROPINIROLE HYDROCHLORIDE [Concomitant]
     Active Substance: ROPINIROLE HYDROCHLORIDE
  28. ADVAIR HFA [Concomitant]
     Active Substance: FLUTICASONE PROPIONATE\SALMETEROL XINAFOATE
  29. ZINC [Concomitant]
     Active Substance: ZINC
  30. VITAMIN D3 [Concomitant]
     Active Substance: CHOLECALCIFEROL
  31. XOPENEX [Concomitant]
     Active Substance: LEVALBUTEROL HYDROCHLORIDE
  32. VITAMINS NOS [Concomitant]
     Active Substance: VITAMINS
  33. CYANOCOBALAMIN [Concomitant]
     Active Substance: CYANOCOBALAMIN
  34. XOPENEX HFA [Concomitant]
     Active Substance: LEVALBUTEROL TARTRATE
  35. ATORVASTATIN [Concomitant]
     Active Substance: ATORVASTATIN
  36. MONTELUKAST [Concomitant]
     Active Substance: MONTELUKAST SODIUM
  37. METOCLOPRAMIDE [Concomitant]
     Active Substance: METOCLOPRAMIDE
  38. OXYCODONE [Concomitant]
     Active Substance: OXYCODONE
  39. ROPINIROLE [Concomitant]
     Active Substance: ROPINIROLE
  40. HYDRALAZINE [Concomitant]
     Active Substance: HYDRALAZINE HYDROCHLORIDE
  41. CALCIUM 600 + D3 PLUS MINERALS [Concomitant]
  42. LOVENOX [Concomitant]
     Active Substance: ENOXAPARIN SODIUM
  43. LEVALBUTEROL [Concomitant]
     Active Substance: LEVALBUTEROL

REACTIONS (8)
  - Spinal fracture [Unknown]
  - Rib fracture [Unknown]
  - Pulmonary thrombosis [Unknown]
  - Sepsis [Unknown]
  - Kidney infection [Unknown]
  - Weight fluctuation [Unknown]
  - Dehydration [Unknown]
  - Oxygen saturation decreased [Unknown]

NARRATIVE: CASE EVENT DATE: 20210505
